FAERS Safety Report 12164022 (Version 2)
Quarter: 2016Q2

REPORT INFORMATION
  Report Type: Spontaneous
  Country: US (occurrence: US)
  Receive Date: 20160309
  Receipt Date: 20160428
  Transmission Date: 20160815
  Serious: No
  Sender: FDA-Public Use
  Company Number: US-GLAXOSMITHKLINE-US2016031745

PATIENT
  Age: 74 Year
  Sex: Female

DRUGS (1)
  1. BREO ELLIPTA [Suspect]
     Active Substance: FLUTICASONE FUROATE\VILANTEROL TRIFENATATE
     Indication: CHRONIC OBSTRUCTIVE PULMONARY DISEASE
     Dosage: 100/25 MG, 1 PUFF QD
     Route: 055
     Dates: start: 201501

REACTIONS (3)
  - Nausea [Unknown]
  - Retching [Unknown]
  - Product quality issue [Unknown]

NARRATIVE: CASE EVENT DATE: 20160229
